FAERS Safety Report 7769257-3 (Version None)
Quarter: 2011Q3

REPORT INFORMATION
  Report Type: 
  Country: None (occurrence: None)
  Receive Date: 20110922
  Receipt Date: 20110915
  Transmission Date: 20111222
  Serious: Yes (Other)
  Sender: FDA-Public Use
  Company Number: US-ROCHE-791313

PATIENT
  Sex: Male
  Weight: 86.6 kg

DRUGS (1)
  1. ACCUTANE [Suspect]
     Indication: ACNE
     Route: 065
     Dates: start: 19820101, end: 19850101

REACTIONS (6)
  - DEAFNESS [None]
  - COLITIS ULCERATIVE [None]
  - INFLAMMATORY BOWEL DISEASE [None]
  - GASTROINTESTINAL DISORDER [None]
  - DEPRESSION [None]
  - IRRITABLE BOWEL SYNDROME [None]
